FAERS Safety Report 11202748 (Version 6)
Quarter: 2015Q3

REPORT INFORMATION
  Report Type: Report from Study
  Country: US (occurrence: US)
  Receive Date: 20150619
  Receipt Date: 20150914
  Transmission Date: 20151125
  Serious: Yes (Hospitalization)
  Sender: FDA-Public Use
  Company Number: US-ALEXION-A201502236

PATIENT

DRUGS (4)
  1. SOLIRIS [Suspect]
     Active Substance: ECULIZUMAB
     Indication: HAEMOLYTIC URAEMIC SYNDROME
     Dosage: UNK
     Route: 042
  2. ZYRTEC [Concomitant]
     Active Substance: CETIRIZINE HYDROCHLORIDE
     Indication: CHEST DISCOMFORT
  3. ZYRTEC [Concomitant]
     Active Substance: CETIRIZINE HYDROCHLORIDE
     Indication: OROPHARYNGEAL PAIN
  4. ZYRTEC [Concomitant]
     Active Substance: CETIRIZINE HYDROCHLORIDE
     Indication: ABDOMINAL PAIN UPPER
     Route: 065

REACTIONS (11)
  - Abdominal pain upper [Not Recovered/Not Resolved]
  - Headache [Not Recovered/Not Resolved]
  - Gastroenteritis viral [Recovering/Resolving]
  - Oropharyngeal pain [Unknown]
  - Chest discomfort [Unknown]
  - Viral infection [Unknown]
  - Headache [Recovered/Resolved]
  - Abdominal pain upper [Recovering/Resolving]
  - Discomfort [Unknown]
  - Feeling abnormal [Unknown]
  - Eye swelling [Unknown]

NARRATIVE: CASE EVENT DATE: 20150609
